FAERS Safety Report 13075208 (Version 1)
Quarter: 2016Q4

REPORT INFORMATION
  Report Type: Report from Study
  Country: None (occurrence: DE)
  Receive Date: 20161230
  Receipt Date: 20161230
  Transmission Date: 20170207
  Serious: Yes (Hospitalization)
  Sender: FDA-Public Use
  Company Number: DE-ABBVIE-16K-062-1822804-00

PATIENT
  Sex: Male
  Weight: 68 kg

DRUGS (4)
  1. MUTAFLOR [Concomitant]
     Active Substance: ESCHERICHIA COLI
     Indication: PRODUCT USED FOR UNKNOWN INDICATION
  2. CALCIUM SANDOZ [Concomitant]
     Active Substance: CALCIUM
     Indication: PRODUCT USED FOR UNKNOWN INDICATION
     Dates: end: 20160711
  3. HUMIRA [Suspect]
     Active Substance: ADALIMUMAB
     Indication: PRODUCT USED FOR UNKNOWN INDICATION
     Route: 058
  4. MEZAVANT [Concomitant]
     Active Substance: MESALAMINE
     Indication: PRODUCT USED FOR UNKNOWN INDICATION

REACTIONS (2)
  - Colitis ulcerative [Recovered/Resolved]
  - Osteoporosis [Recovered/Resolved]

NARRATIVE: CASE EVENT DATE: 2016
